FAERS Safety Report 4867262-8 (Version None)
Quarter: 2005Q4

REPORT INFORMATION
  Report Type: 
  Country: None (occurrence: None)
  Receive Date: 20051227
  Receipt Date: 20051227
  Transmission Date: 20060501
  Serious: Yes (Other)
  Sender: FDA-Public Use
  Company Number: None

PATIENT
  Age: 45 Year
  Sex: Female
  Weight: 68.0396 kg

DRUGS (1)
  1. SYNVISC [Suspect]
     Indication: OSTEOARTHRITIS
     Dates: start: 20051128, end: 20051212

REACTIONS (2)
  - REBOUND EFFECT [None]
  - URTICARIA [None]
